FAERS Safety Report 6846243-9 (Version None)
Quarter: 2010Q3

REPORT INFORMATION
  Report Type: 
  Country: None (occurrence: None)
  Receive Date: 20100715
  Receipt Date: 20070915
  Transmission Date: 20110219
  Serious: No
  Sender: FDA-Public Use
  Company Number: US-PFIZER INC-2007078002

PATIENT
  Sex: Female
  Weight: 152.3 kg

DRUGS (9)
  1. CHANTIX [Suspect]
     Indication: SMOKING CESSATION THERAPY
     Dates: start: 20070801
  2. GLIPIZIDE [Concomitant]
  3. LISINOPRIL [Concomitant]
  4. ACTOS [Concomitant]
  5. ZETIA [Concomitant]
  6. METFORMIN HCL [Concomitant]
  7. PAXIL [Concomitant]
  8. MULTI-VITAMINS [Concomitant]
  9. SIMVASTATIN [Concomitant]

REACTIONS (5)
  - ABDOMINAL DISCOMFORT [None]
  - ABDOMINAL PAIN UPPER [None]
  - ABNORMAL DREAMS [None]
  - FLATULENCE [None]
  - POOR QUALITY SLEEP [None]
